FAERS Safety Report 9521576 (Version 2)
Quarter: 2013Q3

REPORT INFORMATION
  Report Type: Report from Study
  Country: IT (occurrence: IT)
  Receive Date: 20130913
  Receipt Date: 20130920
  Transmission Date: 20140515
  Serious: Yes (Other)
  Sender: FDA-Public Use
  Company Number: IT-ASTRAZENECA-2013SE67577

PATIENT
  Age: 28504 Day
  Sex: Male
  Weight: 81 kg

DRUGS (6)
  1. VANDETANIB [Suspect]
     Indication: MEDULLARY THYROID CANCER
     Route: 048
     Dates: start: 20110718, end: 20130905
  2. METFORMIN [Concomitant]
     Indication: DIABETES MELLITUS
     Route: 048
  3. TOTALIP [Concomitant]
     Indication: HYPERCHOLESTEROLAEMIA
     Route: 048
  4. TENORETIC [Concomitant]
     Indication: HYPERTENSION
     Dosage: 25/6.25 MG DAILY
     Route: 048
     Dates: start: 20120517
  5. EUTIROX [Concomitant]
     Indication: HYPOTHYROIDISM
     Route: 048
     Dates: start: 20130410
  6. ENALAPRIL [Concomitant]
     Indication: HYPERTENSION
     Route: 048
     Dates: start: 20130820

REACTIONS (3)
  - Cholecystitis [Recovered/Resolved]
  - Aspartate aminotransferase increased [Recovered/Resolved]
  - Alanine aminotransferase increased [Not Recovered/Not Resolved]
